FAERS Safety Report 8542055-9 (Version None)
Quarter: 2012Q3

REPORT INFORMATION
  Report Type: 
  Country: None (occurrence: None)
  Receive Date: 20120726
  Receipt Date: 20120719
  Transmission Date: 20120928
  Serious: Yes (Death)
  Sender: FDA-Public Use
  Company Number: US-UCBSA-062314

PATIENT

DRUGS (1)
  1. VIMPAT [Suspect]

REACTIONS (1)
  - SUDDEN DEATH [None]
